FAERS Safety Report 17857171 (Version 1)
Quarter: 2020Q2

REPORT INFORMATION
  Report Type: Spontaneous
  Country: US (occurrence: US)
  Receive Date: 20200603
  Receipt Date: 20200603
  Transmission Date: 20200714
  Serious: Yes (Death, Other)
  Sender: FDA-Public Use
  Company Number: US-GILEAD-2020-0469603

PATIENT
  Age: 68 Year
  Sex: Male
  Weight: 89 kg

DRUGS (19)
  1. HUMALOG [Concomitant]
     Active Substance: INSULIN LISPRO
  2. LANTUS [Concomitant]
     Active Substance: INSULIN GLARGINE
  3. DEXMEDETOMIDINE. [Concomitant]
     Active Substance: DEXMEDETOMIDINE
  4. SINGULAIR [Concomitant]
     Active Substance: MONTELUKAST SODIUM
  5. AZITHROMYCIN ANHYDROUS. [Concomitant]
     Active Substance: AZITHROMYCIN ANHYDROUS
  6. FENTANYL. [Concomitant]
     Active Substance: FENTANYL
  7. PEPCID [Concomitant]
     Active Substance: FAMOTIDINE
  8. PROPOFOL. [Concomitant]
     Active Substance: PROPOFOL
  9. REMDESIVIR. [Suspect]
     Active Substance: REMDESIVIR
     Dosage: 100 MG, QD
     Route: 042
     Dates: start: 20200525, end: 20200528
  10. COLACE [Concomitant]
     Active Substance: DOCUSATE SODIUM
  11. ZOFRAN [Concomitant]
     Active Substance: ONDANSETRON HYDROCHLORIDE
  12. REMDESIVIR. [Suspect]
     Active Substance: REMDESIVIR
     Indication: COVID-19
     Dosage: 200 MG, ONCE
     Route: 042
     Dates: start: 20200524, end: 20200524
  13. ELIQUIS [Concomitant]
     Active Substance: APIXABAN
  14. SEROQUEL [Concomitant]
     Active Substance: QUETIAPINE FUMARATE
  15. DICLOFENAC [Concomitant]
     Active Substance: DICLOFENAC
  16. MIRALAX [Concomitant]
     Active Substance: POLYETHYLENE GLYCOL 3350
  17. PIPERACILLIN/TAZOBACTAM [Concomitant]
     Active Substance: PIPERACILLIN SODIUM\TAZOBACTAM SODIUM
  18. ACETAMINOPHEN. [Concomitant]
     Active Substance: ACETAMINOPHEN
  19. NOREPINEPHRINE. [Concomitant]
     Active Substance: NOREPINEPHRINE

REACTIONS (2)
  - Respiratory failure [Unknown]
  - COVID-19 [Fatal]

NARRATIVE: CASE EVENT DATE: 202005
